FAERS Safety Report 9516620 (Version 1)
Quarter: 2013Q3

REPORT INFORMATION
  Report Type: Spontaneous
  Country: US (occurrence: US)
  Receive Date: 20130911
  Receipt Date: 20130911
  Transmission Date: 20140515
  Serious: No
  Sender: FDA-Public Use
  Company Number: US-BAYER-2013-109201

PATIENT
  Sex: Female

DRUGS (2)
  1. CLIMARA [Suspect]
     Dosage: 0.075 MG, UNK
  2. CLIMARA [Suspect]
     Dosage: 0.05 MG, UNK

REACTIONS (5)
  - Unevaluable event [None]
  - Headache [None]
  - Medication error [None]
  - Emotional distress [None]
  - Product adhesion issue [None]
